FAERS Safety Report 8785243 (Version 3)
Quarter: 2012Q4

REPORT INFORMATION
  Report Type: Spontaneous
  Country: NL (occurrence: None)
  Receive Date: 20120831
  Receipt Date: 20121005
  Transmission Date: 20130627
  Serious: Yes (Hospitalization)
  Sender: FDA-Public Use
  Company Number: 2012205796

PATIENT
  Age: 67 Year
  Sex: Male
  Weight: 90 kg

DRUGS (14)
  1. FRAGMIN (DALTEPARIN SODIUM) SOLUTION FOR INJECTION [Suspect]
     Indication: DVT
     Route: 058
     Dates: start: 20120212, end: 20120522
  2. LIPITOR [Suspect]
     Indication: HYPERCHOLESTEROLAEMIA
     Route: 048
     Dates: start: 20080318, end: 20120522
  3. RITUXIMAB [Suspect]
     Indication: MALIGNANT LYMPHOID NEOPLASM
     Route: 042
     Dates: start: 20120516
  4. AMLODIPINE BESYLATENALSARTAN (AMLODIPINE BESILATE, VALSARTAN) [Suspect]
     Indication: HYPERTENSION
     Route: 048
     Dates: start: 20120209, end: 20120522
  5. POLYETHYLENE GLYCOL [Suspect]
     Indication: OBSTIPATION
     Route: 048
     Dates: start: 20120209, end: 20120222
  6. FUROSEMIDE [Suspect]
     Indication: HYPERTENSION
     Route: 048
     Dates: start: 20120210, end: 20120522
  7. METOPROLOL [Suspect]
     Indication: HYPERTENSION
     Route: 048
     Dates: start: 20120223, end: 20120522
  8. OXYCODONE HYDROCHLORIDE [Suspect]
     Indication: PAIN
     Route: 048
     Dates: start: 20120223, end: 20120522
  9. TAMSULOSIN [Suspect]
     Indication: PROSTATIC DISORDER
     Route: 048
     Dates: start: 20120206, end: 20120522
  10. PREDNISONE (PREDNISONE) [Suspect]
     Indication: MALIGNANT LYMPHOID NEOPLASM
     Route: 048
     Dates: start: 20120516
  11. CYCLOPHOSPHAMIDE [Suspect]
     Indication: MALIGNANT LYMPHOID NEOPLASM
     Route: 042
     Dates: start: 20120516
  12. DOXORUBICIN [Suspect]
     Indication: MALIGNANT LYMPHOID NEOPLASM
     Route: 042
     Dates: start: 20120516
  13. VINCRISTINE [Suspect]
     Indication: MALIGNANT LYMPHOID NEOPLASM
     Route: 042
     Dates: start: 20120516
  14. G-CSF [Suspect]
     Indication: MALIGNANT LYMPHOID NEOPLASM
     Route: 058
     Dates: start: 20120517

REACTIONS (6)
  - Dyspnoea [None]
  - Prostatic disorder [None]
  - Hypertension [None]
  - Constipation [None]
  - Deep vein thrombosis [None]
  - Pain [None]
